FAERS Safety Report 13792640 (Version 2)
Quarter: 2018Q3

REPORT INFORMATION
  Report Type: Spontaneous
  Country: US (occurrence: US)
  Receive Date: 20170726
  Receipt Date: 20180705
  Transmission Date: 20181010
  Serious: Yes (Other)
  Sender: FDA-Public Use
  Company Number: US-PFIZER INC-2017318659

PATIENT
  Sex: Female

DRUGS (16)
  1. CLINDAMYCIN HCL [Suspect]
     Active Substance: CLINDAMYCIN HYDROCHLORIDE
     Dosage: 300 MG, UNK
  2. MEDROL [Suspect]
     Active Substance: METHYLPREDNISOLONE
     Dosage: 4 MG, UNK
  3. FENTANYL. [Suspect]
     Active Substance: FENTANYL
     Dosage: 100 MCG/HOUR
  4. FLECTOR [Suspect]
     Active Substance: DICLOFENAC EPOLAMINE
     Dosage: 1.3 %
  5. LEVOFLOXACIN. [Suspect]
     Active Substance: LEVOFLOXACIN
     Dosage: 500 MG, UNK
  6. DEXAMETHASONE W/TOBRAMYCIN [Suspect]
     Active Substance: DEXAMETHASONE\TOBRAMYCIN
     Dosage: TOBRAMYCIN 0.3%?DEXAMETHASONE 0.1%
  7. LINEZOLID. [Suspect]
     Active Substance: LINEZOLID
     Dosage: 600 MG, UNK
  8. POTASSIUM CHLORIDE. [Suspect]
     Active Substance: POTASSIUM CHLORIDE
     Dosage: 20 MEQ, UNK
  9. POTASSIUM CHLORIDE. [Suspect]
     Active Substance: POTASSIUM CHLORIDE
     Dosage: UNK
  10. SPIRONOLACTONE. [Suspect]
     Active Substance: SPIRONOLACTONE
     Dosage: 25 MG, UNK
  11. HYDROMORPHONE HYDROCHLORIDE. [Suspect]
     Active Substance: HYDROMORPHONE HYDROCHLORIDE
     Dosage: 2 MG, UNK
  12. PROMETHAZINE HCL [Suspect]
     Active Substance: PROMETHAZINE HYDROCHLORIDE
     Dosage: 25 MG, UNK
  13. FUROSEMIDE. [Suspect]
     Active Substance: FUROSEMIDE
     Dosage: 20 MG, UNK
  14. LORAZEPAM. [Suspect]
     Active Substance: LORAZEPAM
     Dosage: 1 MG, UNK
  15. SULFAMETHOXAZOLE/TRIMETHOPRIM [Suspect]
     Active Substance: SULFAMETHOXAZOLE\TRIMETHOPRIM
     Dosage: TRIMETHOPRIM?SULFAMETHOXAZOLE DS 800?160MG
  16. METAXALONE. [Suspect]
     Active Substance: METAXALONE
     Dosage: 800 MG, UNK

REACTIONS (15)
  - Rheumatoid arthritis [Unknown]
  - Depression [Unknown]
  - Synovitis [Unknown]
  - Crepitations [Unknown]
  - Back pain [Unknown]
  - Pain in extremity [Unknown]
  - Joint range of motion decreased [Unknown]
  - Joint noise [Unknown]
  - Tenderness [Unknown]
  - Nodal osteoarthritis [Unknown]
  - Arthralgia [Unknown]
  - Peripheral swelling [Unknown]
  - Tenosynovitis [Unknown]
  - Blood pressure increased [Unknown]
  - Anxiety [Unknown]
